FAERS Safety Report 8383960-6 (Version None)
Quarter: 2012Q2

REPORT INFORMATION
  Report Type: 
  Country: None (occurrence: None)
  Receive Date: 20120524
  Receipt Date: 20120509
  Transmission Date: 20120825
  Serious: Yes (Other)
  Sender: FDA-Public Use
  Company Number: DE-ROCHE-1061380

PATIENT
  Sex: Male
  Weight: 83 kg

DRUGS (10)
  1. CLEMASTINE [Concomitant]
     Indication: PREMEDICATION
     Route: 042
     Dates: start: 20120322, end: 20120329
  2. ONCOVIN [Concomitant]
     Indication: WALDENSTROM'S MACROGLOBULINAEMIA
  3. MABTHERA [Suspect]
     Route: 042
     Dates: start: 20120322, end: 20120329
  4. CYTOXAN [Concomitant]
     Indication: WALDENSTROM'S MACROGLOBULINAEMIA
  5. PREDNISONE [Concomitant]
     Indication: WALDENSTROM'S MACROGLOBULINAEMIA
  6. RANITIDINE [Concomitant]
     Indication: PREMEDICATION
     Route: 042
     Dates: start: 20120322, end: 20120329
  7. FLUDARABINE PHOSPHATE [Concomitant]
     Indication: WALDENSTROM'S MACROGLOBULINAEMIA
     Dates: start: 20060101, end: 20060101
  8. MABTHERA [Suspect]
     Indication: WALDENSTROM'S MACROGLOBULINAEMIA
     Route: 042
     Dates: start: 20091001, end: 20100201
  9. DOXORUBICIN HCL [Concomitant]
     Indication: WALDENSTROM'S MACROGLOBULINAEMIA
  10. FLUDARABINE PHOSPHATE [Concomitant]
     Dates: start: 20070101, end: 20070101

REACTIONS (4)
  - JOINT SWELLING [None]
  - HYPOAESTHESIA [None]
  - SWELLING FACE [None]
  - ARTHRALGIA [None]
